FAERS Safety Report 12220539 (Version 1)
Quarter: 2016Q1

REPORT INFORMATION
  Report Type: Spontaneous
  Country: US (occurrence: US)
  Receive Date: 20160330
  Receipt Date: 20160330
  Transmission Date: 20160526
  Serious: No
  Sender: FDA-Public Use
  Company Number: US-MYLANLABS-2016M1003785

PATIENT
  Age: 49 Year
  Sex: Female

DRUGS (2)
  1. KLONOPIN [Concomitant]
     Active Substance: CLONAZEPAM
     Dosage: UNK
  2. EMSAM [Suspect]
     Active Substance: SELEGILINE
     Indication: MAJOR DEPRESSION
     Dosage: 9 MG, QD, CHANGED Q24HR
     Route: 062
     Dates: start: 20160119

REACTIONS (2)
  - Mania [Not Recovered/Not Resolved]
  - Insomnia [Not Recovered/Not Resolved]

NARRATIVE: CASE EVENT DATE: 20160119
